FAERS Safety Report 5033295-4 (Version None)
Quarter: 2006Q2

REPORT INFORMATION
  Report Type: 
  Country: None (occurrence: None)
  Receive Date: 20060515
  Receipt Date: 20060413
  Transmission Date: 20061013
  Serious: No
  Sender: FDA-Public Use
  Company Number: S06-USA-01475-01

PATIENT
  Age: 70 Year
  Sex: Male

DRUGS (6)
  1. NAMENDA [Suspect]
     Indication: DEMENTIA ALZHEIMER'S TYPE
     Dosage: 5 MG QD PO
     Route: 047
     Dates: start: 20060326, end: 20060401
  2. NAMENDA [Suspect]
     Indication: DEMENTIA ALZHEIMER'S TYPE
     Dosage: 5 MG BID PO
     Route: 048
     Dates: start: 20060402, end: 20060408
  3. NAMENDA [Suspect]
     Indication: DEMENTIA ALZHEIMER'S TYPE
     Dosage: 15 MG QD PO
     Route: 048
     Dates: start: 20060409
  4. NORVASC [Concomitant]
  5. LIPITOR [Concomitant]
  6. VITAMINS [Concomitant]

REACTIONS (3)
  - BLOOD PRESSURE FLUCTUATION [None]
  - DIZZINESS [None]
  - HALLUCINATION [None]
